FAERS Safety Report 19847526 (Version 2)
Quarter: 2021Q4

REPORT INFORMATION
  Report Type: Spontaneous
  Country: JP (occurrence: JP)
  Receive Date: 20210917
  Receipt Date: 20211203
  Transmission Date: 20220303
  Serious: Yes (Other)
  Sender: FDA-Public Use
  Company Number: JP-BAYER-2021-209181

PATIENT
  Age: 85 Year
  Sex: Male

DRUGS (4)
  1. NUBEQA [Suspect]
     Active Substance: DAROLUTAMIDE
     Indication: Hormone-refractory prostate cancer
     Dosage: 600 MG, BID
     Route: 048
     Dates: start: 20210902, end: 20210902
  2. NUBEQA [Suspect]
     Active Substance: DAROLUTAMIDE
     Indication: Prostatic specific antigen increased
  3. LEUPLIN [Concomitant]
     Active Substance: LEUPROLIDE ACETATE
     Indication: Prostate cancer
     Dosage: 11.25 MG, Q3MON
     Route: 058
     Dates: start: 20161101
  4. SILODOSIN [Concomitant]
     Active Substance: SILODOSIN
     Indication: Benign prostatic hyperplasia
     Dosage: 4 MG, BID
     Route: 048
     Dates: start: 20210114

REACTIONS (7)
  - Loss of consciousness [Recovered/Resolved]
  - Chills [Unknown]
  - Hyperhidrosis [Unknown]
  - Disorientation [None]
  - Fall [None]
  - Contusion [None]
  - Altered state of consciousness [Recovered/Resolved]

NARRATIVE: CASE EVENT DATE: 20210902
